FAERS Safety Report 13246215 (Version 1)
Quarter: 2017Q1

REPORT INFORMATION
  Report Type: Spontaneous
  Country: FR (occurrence: FR)
  Receive Date: 20170217
  Receipt Date: 20170217
  Transmission Date: 20170428
  Serious: Yes (Other)
  Sender: FDA-Public Use
  Company Number: FR-PFIZER INC-2017062524

PATIENT
  Age: 45 Year
  Sex: Male

DRUGS (5)
  1. SINGULAIR [Concomitant]
     Active Substance: MONTELUKAST SODIUM
     Dosage: 10 MG, 1X/DAY (ONE DOSAGE FORM DAILY)
  2. ROWASA [Concomitant]
     Active Substance: MESALAMINE
     Dosage: UNK, TWICE MONTHLY
  3. AERIUS [Concomitant]
     Active Substance: DESLORATADINE
     Dosage: 5 MG, 1X/DAY (ONE DOSAGE FORM DAILY)
  4. SALAZOPYRINE [Suspect]
     Active Substance: SULFASALAZINE
     Indication: COLITIS
     Dosage: 2 DF, 2X/DAY (2 IN THE MORNING AND 2 IN THE EVENING)
     Route: 048
     Dates: start: 20160613
  5. SYMBICORT [Concomitant]
     Active Substance: BUDESONIDE\FORMOTEROL FUMARATE DIHYDRATE
     Dosage: 400 UG TWICE A DAY (TWO DOSAGE FORMS DAILY)

REACTIONS (2)
  - Skin plaque [Unknown]
  - Erythema [Unknown]

NARRATIVE: CASE EVENT DATE: 20170115
